FAERS Safety Report 5472020-X (Version None)
Quarter: 2007Q3

REPORT INFORMATION
  Report Type: 
  Country: None (occurrence: None)
  Receive Date: 20070928
  Receipt Date: 20070917
  Transmission Date: 20080115
  Serious: Yes (Hospitalization, Other)
  Sender: FDA-Public Use
  Company Number: US-PFIZER INC-2007077752

PATIENT
  Sex: Female
  Weight: 59.9 kg

DRUGS (7)
  1. LYRICA [Suspect]
     Indication: TRIGEMINAL NEURALGIA
     Dates: start: 20070723, end: 20070809
  2. LEVOTHYROXINE SODIUM [Concomitant]
     Indication: THYROID DISORDER
  3. CARBAMAZEPINE [Concomitant]
  4. BACLOFEN [Concomitant]
  5. BENICAR [Concomitant]
     Indication: HYPERTENSION
  6. LOVASTATIN [Concomitant]
     Indication: BLOOD CHOLESTEROL
  7. NEXIUM [Concomitant]
     Indication: DYSPEPSIA

REACTIONS (9)
  - CLUMSINESS [None]
  - DECREASED APPETITE [None]
  - FATIGUE [None]
  - FEELING DRUNK [None]
  - MYOCARDIAL INFARCTION [None]
  - URINARY TRACT INFECTION [None]
  - VISUAL ACUITY REDUCED [None]
  - WEIGHT DECREASED [None]
  - WHITE BLOOD CELL COUNT INCREASED [None]
